FAERS Safety Report 26204420 (Version 1)
Quarter: 2025Q4

REPORT INFORMATION
  Report Type: Spontaneous
  Country: US (occurrence: US)
  Receive Date: 20251226
  Receipt Date: 20251226
  Transmission Date: 20260118
  Serious: No
  Sender: MERCK SHARP & DOHME LLC
  Company Number: US-009507513-2357012

PATIENT
  Age: 83 Year
  Sex: Male

DRUGS (1)
  1. IMIPENEM [Suspect]
     Active Substance: IMIPENEM
     Indication: Therapeutic embolisation
     Dosage: TIME INTERVAL: TOTAL
     Route: 013

REACTIONS (1)
  - Off label use [Unknown]
